FAERS Safety Report 4610869-3 (Version None)
Quarter: 2005Q2

REPORT INFORMATION
  Report Type: 
  Country: None (occurrence: None)
  Receive Date: 20050222
  Receipt Date: 20041012
  Transmission Date: 20051028
  Serious: Yes (Death)
  Sender: FDA-Public Use
  Company Number: 2004238689US

PATIENT
  Sex: Male

DRUGS (1)
  1. EMCYT [Suspect]
     Indication: PROSTATE CANCER
     Dosage: 140 MG, ORAL
     Route: 048

REACTIONS (1)
  - DEATH [None]
